FAERS Safety Report 22297311 (Version 1)
Quarter: 2023Q2

REPORT INFORMATION
  Report Type: Spontaneous
  Country: GB (occurrence: GB)
  Receive Date: 20230509
  Receipt Date: 20230509
  Transmission Date: 20230721
  Serious: Yes (Disabling, Other)
  Sender: FDA-Public Use
  Company Number: GB-CELLTRION INC.-2023GB009565

PATIENT

DRUGS (1)
  1. INFLIXIMAB [Suspect]
     Active Substance: INFLIXIMAB
     Indication: Crohn^s disease
     Dosage: 120 MG
     Route: 058
     Dates: start: 202211

REACTIONS (5)
  - Anal fistula [Unknown]
  - Sitting disability [Unknown]
  - Impaired healing [Unknown]
  - Pain [Unknown]
  - Intentional dose omission [Unknown]
